FAERS Safety Report 12284917 (Version 2)
Quarter: 2016Q3

REPORT INFORMATION
  Report Type: Spontaneous
  Country: FR (occurrence: FR)
  Receive Date: 20160420
  Receipt Date: 20160824
  Transmission Date: 20161109
  Serious: Yes (Hospitalization)
  Sender: FDA-Public Use
  Company Number: FR-ROCHE-1743630

PATIENT
  Age: 61 Year
  Sex: Female

DRUGS (17)
  1. MABTHERA [Suspect]
     Active Substance: RITUXIMAB
     Dosage: C2
     Route: 041
     Dates: start: 20151023
  2. CYTARABINE SANDOZ [Suspect]
     Active Substance: CYTARABINE
     Dosage: 7 CYCLES
     Route: 037
     Dates: start: 20160324, end: 20160324
  3. OXALIPLATINE [Suspect]
     Active Substance: OXALIPLATIN
     Dosage: C5
     Route: 041
     Dates: start: 20160120
  4. STILNOX [Concomitant]
     Active Substance: ZOLPIDEM TARTRATE
     Route: 048
  5. OXALIPLATINE [Suspect]
     Active Substance: OXALIPLATIN
     Indication: MANTLE CELL LYMPHOMA
     Dosage: 6 COURSES?C1
     Route: 041
     Dates: start: 20151002
  6. OXALIPLATINE [Suspect]
     Active Substance: OXALIPLATIN
     Dosage: C2
     Route: 041
     Dates: start: 20151023
  7. OXALIPLATINE [Suspect]
     Active Substance: OXALIPLATIN
     Dosage: C3
     Route: 041
     Dates: start: 20151120
  8. OXALIPLATINE [Suspect]
     Active Substance: OXALIPLATIN
     Dosage: C4
     Route: 041
     Dates: start: 20151211
  9. NEODEX (FRANCE) [Suspect]
     Active Substance: DEXAMETHASONE ACETATE
     Indication: MANTLE CELL LYMPHOMA
     Dosage: 7 CYCLES
     Route: 048
     Dates: start: 20151002, end: 20160324
  10. MABTHERA [Suspect]
     Active Substance: RITUXIMAB
     Dosage: C4
     Route: 041
     Dates: start: 20151211
  11. PROPRANOLOL [Concomitant]
     Active Substance: PROPRANOLOL\PROPRANOLOL HYDROCHLORIDE
     Route: 048
  12. MABTHERA [Suspect]
     Active Substance: RITUXIMAB
     Dosage: C6
     Route: 041
     Dates: start: 20160226, end: 20160226
  13. OXALIPLATINE [Suspect]
     Active Substance: OXALIPLATIN
     Dosage: C6
     Route: 041
     Dates: start: 20160226, end: 20160226
  14. MABTHERA [Suspect]
     Active Substance: RITUXIMAB
     Indication: MANTLE CELL LYMPHOMA
     Dosage: 6 CYCLES?C1
     Route: 041
     Dates: start: 20151002
  15. MABTHERA [Suspect]
     Active Substance: RITUXIMAB
     Dosage: C5
     Route: 041
     Dates: start: 20160120
  16. MABTHERA [Suspect]
     Active Substance: RITUXIMAB
     Dosage: C3
     Route: 041
     Dates: start: 20151120
  17. CYTARABINE SANDOZ [Suspect]
     Active Substance: CYTARABINE
     Indication: MANTLE CELL LYMPHOMA
     Dosage: 6 CYCLES
     Route: 041
     Dates: start: 20151002, end: 20160226

REACTIONS (1)
  - Loss of consciousness [Not Recovered/Not Resolved]

NARRATIVE: CASE EVENT DATE: 201602
